FAERS Safety Report 4875583-8 (Version None)
Quarter: 2006Q1

REPORT INFORMATION
  Report Type: 
  Country: None (occurrence: None)
  Receive Date: 20060109
  Receipt Date: 20051226
  Transmission Date: 20060701
  Serious: Yes (Hospitalization)
  Sender: FDA-Public Use
  Company Number: JP-ROCHE-429730

PATIENT
  Age: 77 Year
  Sex: Female

DRUGS (24)
  1. PANALDINE [Suspect]
     Dosage: OTHER INDICATIONS: UNSTABLE ANGINA PECTORIS AND STENT PLACEMENT.
     Route: 048
     Dates: start: 20051104, end: 20051108
  2. BUFFERIN [Concomitant]
     Indication: CORONARY ARTERIAL STENT INSERTION
     Route: 048
     Dates: start: 20051104
  3. PLETAL [Concomitant]
     Indication: CORONARY ARTERIAL STENT INSERTION
     Route: 048
  4. BLOPRESS [Concomitant]
     Route: 048
     Dates: start: 20051104
  5. LIPITOR [Concomitant]
     Indication: HYPERLIPIDAEMIA
     Route: 048
  6. SIGMART [Concomitant]
     Route: 041
     Dates: start: 20051104
  7. HEPARIN SODIUM [Concomitant]
     Indication: CORONARY ARTERIAL STENT INSERTION
     Route: 041
     Dates: start: 20051104
  8. HUMULIN R [Concomitant]
     Indication: DIABETES MELLITUS
     Route: 041
     Dates: start: 20051104
  9. LASIX [Concomitant]
     Route: 042
     Dates: start: 20051104
  10. FERRO-GRADUMET [Concomitant]
     Indication: HAEMOGLOBIN DECREASED
     Route: 048
  11. SERMION [Concomitant]
     Indication: CEREBRAL INFARCTION
     Route: 048
  12. TANDOSPIRONE CITRATE [Concomitant]
     Indication: DRUG USE FOR UNKNOWN INDICATION
     Dosage: TRADE NAME SEDIEL.
     Route: 048
  13. ARIMIDEX [Concomitant]
     Indication: BREAST CANCER
     Route: 048
  14. OMEPRAL [Concomitant]
     Indication: DRUG USE FOR UNKNOWN INDICATION
     Route: 048
  15. INOVAN [Concomitant]
     Indication: DRUG USE FOR UNKNOWN INDICATION
     Route: 065
  16. CEFAZOLIN [Concomitant]
     Indication: DRUG USE FOR UNKNOWN INDICATION
     Route: 065
  17. DEXTRAN [Concomitant]
     Indication: DRUG USE FOR UNKNOWN INDICATION
     Route: 065
  18. GLYCEOL [Concomitant]
     Indication: DRUG USE FOR UNKNOWN INDICATION
     Route: 065
  19. RADICUT [Concomitant]
     Indication: DRUG USE FOR UNKNOWN INDICATION
     Route: 065
  20. UNASYN [Concomitant]
     Indication: DRUG USE FOR UNKNOWN INDICATION
     Route: 048
  21. PRIMPERAN INJ [Concomitant]
     Indication: DRUG USE FOR UNKNOWN INDICATION
     Route: 065
  22. DIGILANOGEN C [Concomitant]
     Indication: DRUG USE FOR UNKNOWN INDICATION
     Route: 065
  23. MAXIPIME [Concomitant]
     Indication: DRUG USE FOR UNKNOWN INDICATION
     Route: 065
  24. DIPRIVAN [Concomitant]
     Indication: DRUG USE FOR UNKNOWN INDICATION
     Route: 065

REACTIONS (4)
  - AORTIC ANEURYSM RUPTURE [None]
  - DEPRESSED LEVEL OF CONSCIOUSNESS [None]
  - HISTIOCYTOSIS HAEMATOPHAGIC [None]
  - THROMBOTIC THROMBOCYTOPENIC PURPURA [None]
